FAERS Safety Report 22047177 (Version 1)
Quarter: 2023Q1

REPORT INFORMATION
  Report Type: Spontaneous
  Country: US (occurrence: US)
  Receive Date: 20230301
  Receipt Date: 20230301
  Transmission Date: 20230417
  Serious: No
  Sender: FDA-Public Use
  Company Number: US-GBT-020456

PATIENT
  Sex: Female

DRUGS (1)
  1. OXBRYTA [Suspect]
     Active Substance: VOXELOTOR
     Indication: Sickle cell disease
     Dosage: TIME INTERVAL: 0.33333333 DAYS
     Route: 048
     Dates: start: 202102

REACTIONS (3)
  - Haemoglobin decreased [Unknown]
  - Pruritus [Not Recovered/Not Resolved]
  - Off label use [Unknown]
